FAERS Safety Report 8438728-9 (Version None)
Quarter: 2012Q2

REPORT INFORMATION
  Report Type: 
  Country: None (occurrence: None)
  Receive Date: 20120611
  Receipt Date: 20120611
  Transmission Date: 20120825
  Serious: Yes (Hospitalization)
  Sender: FDA-Public Use
  Company Number: None

PATIENT
  Sex: Female

DRUGS (1)
  1. REVATIO [Suspect]
     Dosage: 20 MG TID 90
     Dates: start: 20120519, end: 20120530

REACTIONS (2)
  - FLUID RETENTION [None]
  - WEIGHT INCREASED [None]
